FAERS Safety Report 20869614 (Version 2)
Quarter: 2022Q2

REPORT INFORMATION
  Report Type: Spontaneous
  Country: DE (occurrence: DE)
  Receive Date: 20220525
  Receipt Date: 20220603
  Transmission Date: 20220721
  Serious: Yes (Death, Hospitalization, Other)
  Sender: FDA-Public Use
  Company Number: DE-BoehringerIngelheim-2022-BI-172360

PATIENT
  Sex: Female

DRUGS (7)
  1. PRADAXA [Suspect]
     Active Substance: DABIGATRAN ETEXILATE MESYLATE
     Indication: Atrial fibrillation
     Dates: start: 201611, end: 20220424
  2. BISOPROLOL [Concomitant]
     Active Substance: BISOPROLOL
     Indication: Hypertension
  3. Candesarplus [Concomitant]
     Indication: Hypertension
  4. SIMVASTATIN [Concomitant]
     Active Substance: SIMVASTATIN
     Indication: Hypercholesterolaemia
  5. EUTHYROX [Concomitant]
     Active Substance: LEVOTHYROXINE SODIUM
     Indication: Thyroidectomy
  6. Metformin  850 mg [Concomitant]
     Indication: Type 2 diabetes mellitus
  7. Torasemid 5mg [Concomitant]
     Indication: Cardiac failure
     Route: 048

REACTIONS (8)
  - Cerebral haemorrhage [Fatal]
  - Generalised tonic-clonic seizure [Unknown]
  - Personality change [Unknown]
  - Confusional state [Unknown]
  - Coma [Unknown]
  - Gastrointestinal infection [Unknown]
  - Nervous system disorder [Unknown]
  - General physical health deterioration [Unknown]
